FAERS Safety Report 4466051-6 (Version None)
Quarter: 2004Q4

REPORT INFORMATION
  Report Type: 
  Country: None (occurrence: None)
  Receive Date: 20041005
  Receipt Date: 20040928
  Transmission Date: 20050328
  Serious: Yes (Other)
  Sender: FDA-Public Use
  Company Number: US-BRISTOL-MYERS SQUIBB COMPANY-12714580

PATIENT
  Age: 73 Year
  Sex: Male
  Weight: 75 kg

DRUGS (5)
  1. PRAVACHOL [Suspect]
     Indication: BLOOD CHOLESTEROL INCREASED
     Route: 048
  2. LISINOPRIL [Concomitant]
  3. PLENDIL [Concomitant]
  4. HYDROCHLOROTHIAZIDE [Concomitant]
  5. ASPIRIN [Concomitant]

REACTIONS (4)
  - GASTROINTESTINAL CARCINOMA [None]
  - HAEMOGLOBIN DECREASED [None]
  - SERUM FERRITIN DECREASED [None]
  - SMALL INTESTINAL HAEMORRHAGE [None]
